FAERS Safety Report 4979539-6 (Version None)
Quarter: 2006Q2

REPORT INFORMATION
  Report Type: 
  Country: None (occurrence: None)
  Receive Date: 20060421
  Receipt Date: 20060411
  Transmission Date: 20061013
  Serious: Yes (Hospitalization)
  Sender: FDA-Public Use
  Company Number: NG-ROCHE-444178

PATIENT
  Age: 27 Year
  Sex: Female

DRUGS (1)
  1. LARIAM [Suspect]
     Indication: DRUG USE FOR UNKNOWN INDICATION
     Route: 065

REACTIONS (4)
  - CONFUSIONAL STATE [None]
  - DISORIENTATION [None]
  - HYPERSENSITIVITY [None]
  - INCOHERENT [None]
